FAERS Safety Report 7134110-5 (Version None)
Quarter: 2010Q4

REPORT INFORMATION
  Report Type: 
  Country: None (occurrence: None)
  Receive Date: 20101117
  Receipt Date: 20101108
  Transmission Date: 20110411
  Serious: Yes (Death)
  Sender: FDA-Public Use
  Company Number: 011795

PATIENT
  Sex: Female

DRUGS (4)
  1. BUSULFEX [Suspect]
     Dosage: 9.6 MG/KG
  2. THIOTEPA [Concomitant]
  3. FLUDARABINE PHOSPHATE [Concomitant]
  4. ATG (ANTILYMPHOCYTE IMMUNOGLOBULIN (HORSE)) [Concomitant]

REACTIONS (1)
  - DEATH [None]
